FAERS Safety Report 7667316-7 (Version None)
Quarter: 2011Q3

REPORT INFORMATION
  Report Type: 
  Country: None (occurrence: None)
  Receive Date: 20110806
  Receipt Date: 20110706
  Transmission Date: 20111222
  Serious: No
  Sender: FDA-Public Use
  Company Number: US-ABBOTT-11P-163-0836542-00

PATIENT
  Sex: Male
  Weight: 127.12 kg

DRUGS (6)
  1. NIASPAN [Suspect]
     Indication: BLOOD TRIGLYCERIDES INCREASED
     Dates: end: 20110705
  2. COQ10 [Concomitant]
     Indication: PRODUCT USED FOR UNKNOWN INDICATION
  3. GLUCOSAMINE [Concomitant]
     Indication: PRODUCT USED FOR UNKNOWN INDICATION
  4. NIASPAN [Suspect]
     Indication: LOW DENSITY LIPOPROTEIN INCREASED
     Dates: start: 20100101
  5. NIASPAN [Suspect]
     Dosage: AT BEDTIME
     Dates: start: 20110705
  6. NSAID'S [Concomitant]
     Indication: PRODUCT USED FOR UNKNOWN INDICATION

REACTIONS (6)
  - COLD SWEAT [None]
  - FLUSHING [None]
  - FEELING HOT [None]
  - HOT FLUSH [None]
  - PRURITUS [None]
  - HYPERHIDROSIS [None]
